FAERS Safety Report 16565957 (Version 2)
Quarter: 2019Q3

REPORT INFORMATION
  Report Type: Spontaneous
  Country: US (occurrence: US)
  Receive Date: 20190712
  Receipt Date: 20190816
  Transmission Date: 20191004
  Serious: No
  Sender: FDA-Public Use
  Company Number: US-VERTEX PHARMACEUTICALS-2019-006457

PATIENT
  Sex: Female

DRUGS (2)
  1. KALYDECO [Suspect]
     Active Substance: IVACAFTOR
     Dosage: 1 DOSAGE FORM/ DAY
     Route: 048
     Dates: start: 2019
  2. KALYDECO [Suspect]
     Active Substance: IVACAFTOR
     Indication: CYSTIC FIBROSIS
     Dosage: 2 DOSAGE FORM/ DAY
     Route: 048
     Dates: start: 20190111, end: 2019

REACTIONS (8)
  - Fatigue [Recovering/Resolving]
  - Nausea [Recovering/Resolving]
  - Amnesia [Recovering/Resolving]
  - Weight decreased [Recovered/Resolved]
  - Headache [Recovering/Resolving]
  - Decreased appetite [Recovering/Resolving]
  - Acne cystic [Unknown]
  - Malaise [Recovering/Resolving]

NARRATIVE: CASE EVENT DATE: 2019
